FAERS Safety Report 12385573 (Version 2)
Quarter: 2016Q2

REPORT INFORMATION
  Report Type: Spontaneous
  Country: JP (occurrence: JP)
  Receive Date: 20160519
  Receipt Date: 20160616
  Transmission Date: 20160815
  Serious: No
  Sender: FDA-Public Use
  Company Number: JP-ABBVIE-16P-087-1632249-00

PATIENT
  Sex: Male

DRUGS (2)
  1. LIPACREON [Suspect]
     Active Substance: PANCRELIPASE
     Indication: PANCREATIC INSUFFICIENCY
     Route: 048
  2. LIPACREON [Suspect]
     Active Substance: PANCRELIPASE
     Indication: PANCREATECTOMY
     Route: 065

REACTIONS (1)
  - Proteinuria [Not Recovered/Not Resolved]
